FAERS Safety Report 9624512 (Version 1)
Quarter: 2013Q4

REPORT INFORMATION
  Report Type: Spontaneous
  Country: IL (occurrence: IL)
  Receive Date: 20131015
  Receipt Date: 20131015
  Transmission Date: 20140711
  Serious: Yes (Life-Threatening)
  Sender: FDA-Public Use
  Company Number: IL-BAXTER-2013BAX039379

PATIENT
  Age: 57 Year
  Sex: Male

DRUGS (4)
  1. NACL 0.9% INTRAVENOUS SOLUTION BP [Suspect]
     Indication: URINE OUTPUT DECREASED
     Route: 065
  2. NACL 0.9% INTRAVENOUS SOLUTION BP [Suspect]
     Indication: THROMBOSIS PROPHYLAXIS
  3. MANNITOL [Suspect]
     Indication: URINE OUTPUT DECREASED
     Dosage: 10 PERCENT IN NORMAL SALINE
  4. MANNITOL [Suspect]
     Indication: THROMBOSIS PROPHYLAXIS

REACTIONS (3)
  - Renal failure acute [Recovered/Resolved]
  - Hyperosmolar state [Recovered/Resolved]
  - Hyponatraemia [Recovered/Resolved]
